FAERS Safety Report 9828097 (Version 1)
Quarter: 2013Q4

REPORT INFORMATION
  Report Type: Spontaneous
  Country: US (occurrence: None)
  Receive Date: 20131223
  Receipt Date: 20131223
  Transmission Date: 20140711
  Serious: Yes (Other)
  Sender: FDA-Public Use
  Company Number: 220901LEO

PATIENT
  Sex: Female

DRUGS (2)
  1. PICATO [Suspect]
     Indication: PRECANCEROUS CELLS PRESENT
     Route: 061
     Dates: start: 201301
  2. COZAAR (LOSARTAN) [Concomitant]

REACTIONS (2)
  - Precancerous skin lesion [None]
  - No adverse event [None]
